FAERS Safety Report 6203315-X (Version None)
Quarter: 2009Q2

REPORT INFORMATION
  Report Type: 
  Country: None (occurrence: None)
  Receive Date: 20090527
  Receipt Date: 20090520
  Transmission Date: 20091009
  Serious: Yes (Death)
  Sender: FDA-Public Use
  Company Number: PHHY2009JP20201

PATIENT
  Sex: Male
  Weight: 57.2 kg

DRUGS (9)
  1. ICL670A ICL+DISTAB [Suspect]
     Indication: IRON OVERLOAD
     Dosage: 1000MG PER DAY
     Route: 048
     Dates: start: 20081030, end: 20081101
  2. NEORAL [Suspect]
     Indication: APLASTIC ANAEMIA
     Dosage: UNK
     Route: 048
     Dates: end: 20081020
  3. BAKTAR [Concomitant]
     Indication: INFECTION PROPHYLAXIS
     Dosage: 100 MG, UNK
     Route: 048
  4. PREDONINE [Concomitant]
     Indication: APLASTIC ANAEMIA
     Dosage: 5 MG, UNK
     Route: 048
     Dates: end: 20081225
  5. TAKEPRON [Concomitant]
     Indication: RENAL DISORDER
     Dosage: 15 MG, UNK
     Route: 048
     Dates: end: 20081226
  6. CYANOCOBALAMIN [Concomitant]
     Indication: RENAL DISORDER
     Dosage: 1500 MG, UNK
     Route: 048
     Dates: end: 20081226
  7. ZOVIRAX [Concomitant]
     Indication: INFECTION PROPHYLAXIS
     Dosage: 200 MG, UNK
     Route: 048
     Dates: end: 20081226
  8. RED BLOOD CELLS [Concomitant]
     Dosage: 2 UNITS 1-2 TIMES A WEEK
     Dates: start: 20081017, end: 20081231
  9. PLATELETS [Concomitant]
     Dosage: 10 UNITS 2-3 TIMES A WEEK
     Dates: start: 20081017, end: 20081231

REACTIONS (2)
  - RENAL FAILURE [None]
  - RENAL IMPAIRMENT [None]
